FAERS Safety Report 7540954-8 (Version None)
Quarter: 2011Q2

REPORT INFORMATION
  Report Type: 
  Country: None (occurrence: None)
  Receive Date: 20110610
  Receipt Date: 20110607
  Transmission Date: 20111010
  Serious: No
  Sender: FDA-Public Use
  Company Number: US-PFIZER INC-2011083693

PATIENT
  Sex: Male
  Weight: 71.202 kg

DRUGS (19)
  1. INSULIN [Concomitant]
     Indication: DIABETES MELLITUS
     Dosage: 25 UNITS IN THE MORNING AND 20 UNITS AT NIGHT
  2. HYDROCHLOROTHIAZIDE [Concomitant]
     Dosage: 12.5 MG, UNK
  3. LISINOPRIL [Concomitant]
     Dosage: 20 MG, UNK
  4. CHANTIX [Suspect]
     Dosage: 1 MG, 1X/DAY
  5. TRAZODONE [Concomitant]
     Indication: DEPRESSION
     Dosage: 400 MG, 1X/DAY (BEDTIME)
     Route: 048
  6. CHANTIX [Suspect]
     Dosage: 0.5 MG, 2X/DAY
     Route: 048
     Dates: start: 20110401, end: 20110401
  7. CHANTIX [Suspect]
     Dosage: 1 MG, 2X/DAY
     Dates: start: 20110401
  8. INSULIN [Concomitant]
     Dosage: UNK
  9. METFORMIN [Concomitant]
     Dosage: 1000 MG, 2X/DAY
  10. DIPYRIDAMOLE [Concomitant]
     Dosage: 75 MG, 3X/DAY
  11. CHANTIX [Suspect]
     Dosage: 2 MG, 2X/DAY
     Route: 048
  12. PRAZOSIN HCL [Concomitant]
     Indication: BLOOD PRESSURE ABNORMAL
     Dosage: 2 MG, 1X/DAY (BEDTIME)
     Route: 048
  13. TRAZODONE [Concomitant]
     Indication: SLEEP DISORDER
  14. SERTRALINE [Concomitant]
     Dosage: 50 MG, DAILY
  15. SIMVASTATIN [Concomitant]
     Dosage: 20 MG, 1X/DAY
  16. CHANTIX [Suspect]
     Indication: SMOKING CESSATION THERAPY
     Dosage: 0.5 MG, 1X/DAY
     Route: 048
     Dates: start: 20110404, end: 20110401
  17. METOPROLOL TARTRATE [Concomitant]
     Indication: BLOOD PRESSURE ABNORMAL
     Dosage: 25 MG, 2X/DAY
     Route: 048
  18. LISINOPRIL AND HYDROCHLOROTHIAZIDE [Concomitant]
     Indication: DIURETIC THERAPY
     Dosage: 5/12.5 MG, 2X/DAY
     Route: 048
  19. HYDROCODONE [Concomitant]
     Indication: PAIN
     Dosage: UNK

REACTIONS (10)
  - FATIGUE [None]
  - PAIN [None]
  - NAUSEA [None]
  - ABDOMINAL DISTENSION [None]
  - DEHYDRATION [None]
  - RETCHING [None]
  - FLATULENCE [None]
  - VOMITING [None]
  - DIARRHOEA [None]
  - MALAISE [None]
